FAERS Safety Report 23464414 (Version 2)
Quarter: 2024Q1

REPORT INFORMATION
  Report Type: Report from Study
  Country: US (occurrence: US)
  Receive Date: 20240201
  Receipt Date: 20240207
  Transmission Date: 20240409
  Serious: Yes (Hospitalization, Other)
  Sender: FDA-Public Use
  Company Number: US-ABBVIE-5613734

PATIENT
  Age: 76 Year
  Sex: Male
  Weight: 56.699 kg

DRUGS (13)
  1. DUOPA [Suspect]
     Active Substance: CARBIDOPA\LEVODOPA
     Indication: Parkinson^s disease
     Route: 050
     Dates: start: 20190822
  2. DUOPA [Suspect]
     Active Substance: CARBIDOPA\LEVODOPA
  3. METOPROLOL [Concomitant]
     Active Substance: METOPROLOL
     Indication: Blood pressure management
  4. LORAZEPAM [Concomitant]
     Active Substance: LORAZEPAM
     Indication: Muscle relaxant therapy
  5. MIRALAX [Concomitant]
     Active Substance: POLYETHYLENE GLYCOL 3350
     Indication: Constipation
  6. CALCIUM [Concomitant]
     Active Substance: CALCIUM
     Indication: Mineral supplementation
  7. FOLIC ACID [Concomitant]
     Active Substance: FOLIC ACID
     Indication: Vitamin supplementation
  8. MELATONIN [Concomitant]
     Active Substance: MELATONIN
     Indication: Sleep disorder therapy
  9. ASPIRIN [Concomitant]
     Active Substance: ASPIRIN
     Indication: Product used for unknown indication
  10. VITAMINS [Concomitant]
     Active Substance: VITAMINS
     Indication: Vitamin supplementation
     Dosage: COMPLETE
  11. ATORVASTATIN [Concomitant]
     Active Substance: ATORVASTATIN
     Indication: Blood cholesterol abnormal
  12. DILTIAZEM [Concomitant]
     Active Substance: DILTIAZEM
     Indication: Product used for unknown indication
  13. OMEGA 3 [Concomitant]
     Active Substance: CAPSAICIN
     Indication: Product used for unknown indication

REACTIONS (10)
  - Myocardial infarction [Unknown]
  - Malaise [Recovering/Resolving]
  - Hiccups [Recovered/Resolved]
  - Sputum discoloured [Not Recovered/Not Resolved]
  - Insomnia [Recovered/Resolved]
  - Pyrexia [Not Recovered/Not Resolved]
  - Agitation [Unknown]
  - Insomnia [Unknown]
  - Restlessness [Unknown]
  - Device breakage [Unknown]

NARRATIVE: CASE EVENT DATE: 20230118
